FAERS Safety Report 4392711-1 (Version None)
Quarter: 2004Q3

REPORT INFORMATION
  Report Type: 
  Country: None (occurrence: None)
  Receive Date: 20040702
  Receipt Date: 20040323
  Transmission Date: 20050211
  Serious: Yes (Other)
  Sender: FDA-Public Use
  Company Number: 2004UW05724

PATIENT
  Age: 87 Year
  Sex: Female
  Weight: 54.4316 kg

DRUGS (4)
  1. CRESTOR [Suspect]
     Indication: HYPERCHOLESTEROLAEMIA
     Dosage: 5 MG QD; PO
     Route: 048
     Dates: start: 20040301
  2. ACCUPRIL [Concomitant]
  3. METOPROLOL [Concomitant]
  4. DYNACIRC [Concomitant]

REACTIONS (3)
  - BURNING SENSATION [None]
  - MYALGIA [None]
  - PAIN IN EXTREMITY [None]
